FAERS Safety Report 11037870 (Version 1)
Quarter: 2015Q2

REPORT INFORMATION
  Report Type: Spontaneous
  Country: PL (occurrence: PL)
  Receive Date: 20150416
  Receipt Date: 20150416
  Transmission Date: 20150821
  Serious: Yes (Other)
  Sender: FDA-Public Use
  Company Number: PL-PFIZER INC-2015122128

PATIENT
  Age: 70 Year
  Sex: Male

DRUGS (2)
  1. SUNITINIB MALATE [Suspect]
     Active Substance: SUNITINIB MALATE
     Dosage: 37.5 MG DAILY FROM 28TH CYCLE
  2. SUNITINIB MALATE [Suspect]
     Active Substance: SUNITINIB MALATE
     Indication: NEOPLASM MALIGNANT
     Dosage: 50 MG, DAILY, SCHEDULE 4/6 WEEKS,
     Dates: start: 201001

REACTIONS (8)
  - Hypothyroidism [Unknown]
  - Palmar-plantar erythrodysaesthesia syndrome [Unknown]
  - Neoplasm malignant [Unknown]
  - Diarrhoea [Unknown]
  - Disease progression [Unknown]
  - Neutropenia [Unknown]
  - Blood pressure increased [Unknown]
  - Atrial fibrillation [Unknown]
